FAERS Safety Report 18337638 (Version 5)
Quarter: 2023Q1

REPORT INFORMATION
  Report Type: Report from Study
  Country: JP (occurrence: JP)
  Receive Date: 20201002
  Receipt Date: 20230129
  Transmission Date: 20230418
  Serious: Yes (Hospitalization)
  Sender: FDA-Public Use
  Company Number: JP-ABBVIE-18S-087-2575059-00

PATIENT
  Age: 71 Year
  Sex: Male
  Weight: 62 kg

DRUGS (3)
  1. CARBIDOPA\LEVODOPA [Suspect]
     Active Substance: CARBIDOPA\LEVODOPA
     Indication: Parkinson^s disease
     Dosage: MD: 7.8 ML, CD: 3.6 ML/HR A- 16 HRS, ED: 0 ML/UNIT A- 0
     Route: 050
     Dates: start: 20181029
  2. CARBIDOPA\LEVODOPA [Suspect]
     Active Substance: CARBIDOPA\LEVODOPA
  3. ROTIGOTINE [Concomitant]
     Active Substance: ROTIGOTINE
     Indication: Parkinson^s disease
     Route: 062
     Dates: start: 20181024

REACTIONS (20)
  - Duodenal ulcer perforation [Unknown]
  - Peritonitis [Unknown]
  - Medical device site pain [Unknown]
  - Mobility decreased [Unknown]
  - Fall [Unknown]
  - Malaise [Unknown]
  - Tremor [Unknown]
  - On and off phenomenon [Unknown]
  - Stoma site discharge [Recovered/Resolved]
  - Stoma site pain [Unknown]
  - Stoma site erythema [Unknown]
  - Stoma site oedema [Unknown]
  - Therapeutic response shortened [Unknown]
  - Drug ineffective [Unknown]
  - Stoma site extravasation [Unknown]
  - Stoma site infection [Recovered/Resolved]
  - Stoma site discharge [Unknown]
  - Abdominal pain upper [Recovered/Resolved]
  - Autonomic nervous system imbalance [Unknown]
  - Hyperhidrosis [Unknown]

NARRATIVE: CASE EVENT DATE: 20180101
